FAERS Safety Report 20598839 (Version 1)
Quarter: 2022Q1

REPORT INFORMATION
  Report Type: Report from Study
  Country: US (occurrence: US)
  Receive Date: 20220315
  Receipt Date: 20220315
  Transmission Date: 20220423
  Serious: Yes (Hospitalization)
  Sender: FDA-Public Use
  Company Number: US-BRISTOL-MYERS SQUIBB COMPANY-BMS-2022-037903

PATIENT
  Age: 65 Year
  Sex: Female
  Weight: 56.7 kg

DRUGS (12)
  1. IPILIMUMAB [Suspect]
     Active Substance: IPILIMUMAB
     Indication: Angiosarcoma metastatic
     Dosage: 1 MILLIGRAM/KILOGRAM, Q3WK (62 MG)
     Route: 042
     Dates: start: 20201216
  2. NIVOLUMAB [Suspect]
     Active Substance: NIVOLUMAB
     Indication: Angiosarcoma metastatic
     Dosage: 3 MILLIGRAM/KILOGRAM, Q3WK
     Route: 042
     Dates: start: 20201216
  3. LOSARTAN [Concomitant]
     Active Substance: LOSARTAN
     Indication: Hypertension
     Dosage: 100 MILLIGRAM, QD
     Route: 048
     Dates: start: 20200924
  4. TRENTAL [Concomitant]
     Active Substance: PENTOXIFYLLINE
     Indication: Pain
     Dosage: 400 MILLIGRAM, TID
     Route: 048
     Dates: start: 20200908
  5. EMLA [Concomitant]
     Active Substance: LIDOCAINE\PRILOCAINE
     Indication: Prophylaxis
     Dosage: 2.5-2.5 PERCENT PRN
     Route: 061
     Dates: start: 20140101
  6. CICLOPIROX [Concomitant]
     Active Substance: CICLOPIROX
     Indication: Onychogryphosis
     Dosage: 0.77 PERCENT PRN
     Route: 061
     Dates: start: 20201015
  7. LEVOTHYROXINE [Concomitant]
     Active Substance: LEVOTHYROXINE
     Indication: Hypothyroidism
     Dosage: 50 MICROGRAM, QD
     Route: 048
     Dates: start: 20201204
  8. HYDROCORTISONE [Concomitant]
     Active Substance: HYDROCORTISONE
     Indication: Pruritus
     Dosage: 1 PERCENT BID PRN
     Route: 061
     Dates: start: 20210106
  9. HYDROXYZINE [Concomitant]
     Active Substance: HYDROXYZINE HYDROCHLORIDE
     Indication: Pruritus
     Dosage: 25 MG Q8H PRN
     Route: 048
     Dates: start: 20210106
  10. AMLODIPINE [Concomitant]
     Active Substance: AMLODIPINE BESYLATE
     Indication: Hypertension
     Dosage: 5 MILLIGRAM, QD
     Route: 048
     Dates: start: 20210122, end: 20210125
  11. AMLODIPINE [Concomitant]
     Active Substance: AMLODIPINE BESYLATE
     Dosage: 10 MILLIGRAM, QD
     Route: 048
     Dates: start: 20210126
  12. CHLORTHALIDONE [Concomitant]
     Active Substance: CHLORTHALIDONE
     Indication: Hypertension
     Dosage: 25 MG QMWF
     Route: 048
     Dates: start: 20210126

REACTIONS (2)
  - Haematuria [Recovered/Resolved]
  - Proteinuria [Recovered/Resolved]

NARRATIVE: CASE EVENT DATE: 20210116
